FAERS Safety Report 22353568 (Version 1)
Quarter: 2023Q2

REPORT INFORMATION
  Report Type: Spontaneous
  Country: US (occurrence: US)
  Receive Date: 20230523
  Receipt Date: 20230523
  Transmission Date: 20230722
  Serious: No
  Sender: FDA-Public Use
  Company Number: US-ELI_LILLY_AND_COMPANY-US202305009567

PATIENT
  Sex: Male

DRUGS (3)
  1. TRULICITY [Suspect]
     Active Substance: DULAGLUTIDE
     Indication: Diabetes mellitus
     Dosage: 1.5 MG, 2/W (TO MAKE 3 MG AS PER DOC ORDER)
     Route: 058
     Dates: start: 202107
  2. TRULICITY [Suspect]
     Active Substance: DULAGLUTIDE
     Dosage: 4.5 MG, UNKNOWN
     Route: 058
  3. FARXIGA [Concomitant]
     Active Substance: DAPAGLIFLOZIN PROPANEDIOL
     Indication: Glycosylated haemoglobin decreased
     Dosage: UNK UNK, UNKNOWN
     Route: 065

REACTIONS (2)
  - Glycosylated haemoglobin increased [Unknown]
  - Back pain [Unknown]
